FAERS Safety Report 5780526-9 (Version None)
Quarter: 2008Q2

REPORT INFORMATION
  Report Type: 
  Country: None (occurrence: None)
  Receive Date: 20080620
  Receipt Date: 20080616
  Transmission Date: 20081010
  Serious: Yes (Hospitalization)
  Sender: FDA-Public Use
  Company Number: CA-ASTRAZENECA-2008UW12149

PATIENT
  Age: 24 Year
  Sex: Male

DRUGS (5)
  1. SEROQUEL [Suspect]
     Route: 048
  2. EFFEXOR [Concomitant]
  3. TRAZODONE HCL [Concomitant]
  4. CLONAZEPAM [Concomitant]
  5. IMOVANE [Concomitant]

REACTIONS (5)
  - ALCOHOL ABUSE [None]
  - DELUSION [None]
  - INSOMNIA [None]
  - PSYCHOTIC BEHAVIOUR [None]
  - SUICIDE ATTEMPT [None]
